FAERS Safety Report 9933051 (Version 1)
Quarter: 2014Q1

REPORT INFORMATION
  Report Type: Spontaneous
  Country: US (occurrence: US)
  Receive Date: 20140228
  Receipt Date: 20140228
  Transmission Date: 20141002
  Serious: No
  Sender: FDA-Public Use
  Company Number: US-ABBVIE-13P-163-1067093-00

PATIENT
  Age: 61 Year
  Sex: Male
  Weight: 83.99 kg

DRUGS (4)
  1. ANDROGEL [Suspect]
     Indication: BLOOD TESTOSTERONE DECREASED
     Dosage: PACKET
     Dates: start: 20130205
  2. BLOOD PRESSURE MEDICATION [Concomitant]
     Indication: HYPERTENSION
  3. CHOLESTEROL MEDICATION [Concomitant]
     Indication: BLOOD CHOLESTEROL INCREASED
  4. BABY ASPIRIN [Concomitant]
     Indication: PRODUCT USED FOR UNKNOWN INDICATION

REACTIONS (1)
  - Drug ineffective [Not Recovered/Not Resolved]
